FAERS Safety Report 13334350 (Version 3)
Quarter: 2017Q3

REPORT INFORMATION
  Report Type: Spontaneous
  Country: KR (occurrence: KR)
  Receive Date: 20170313
  Receipt Date: 20170803
  Transmission Date: 20171127
  Serious: Yes (Other)
  Sender: FDA-Public Use
  Company Number: KR-009507513-1703KOR005177

PATIENT
  Age: 49 Year
  Sex: Female
  Weight: 52.2 kg

DRUGS (21)
  1. DEXAMETHASONE SODIUM PHOSPHATE. [Concomitant]
     Active Substance: DEXAMETHASONE SODIUM PHOSPHATE
     Dosage: 10 MG, ONCE. STRENGTH: 5MG/ML
     Route: 042
     Dates: start: 20161201, end: 20161201
  2. EMEND (FOSAPREPITANT DIMEGLUMINE) [Suspect]
     Active Substance: FOSAPREPITANT DIMEGLUMINE
     Dosage: 150 MG, ONCE
     Route: 042
     Dates: start: 20160929, end: 20160929
  3. EMEND (FOSAPREPITANT DIMEGLUMINE) [Suspect]
     Active Substance: FOSAPREPITANT DIMEGLUMINE
     Dosage: 150 MG, ONCE
     Route: 042
     Dates: start: 20161110, end: 20161110
  4. PENIRAMIN [Concomitant]
     Indication: PRURITUS
     Dosage: 2 MG, TID
     Route: 048
     Dates: start: 20160922, end: 20160928
  5. EMEND (FOSAPREPITANT DIMEGLUMINE) [Suspect]
     Active Substance: FOSAPREPITANT DIMEGLUMINE
     Dosage: 150 MG, ONCE
     Route: 042
     Dates: start: 20161020, end: 20161020
  6. ADRIAMYCIN [Concomitant]
     Active Substance: DOXORUBICIN HYDROCHLORIDE
     Indication: BREAST CANCER
     Dosage: 91 MG, ONCE. CYCLE: 1
     Route: 042
     Dates: start: 20160929, end: 20160929
  7. ENDOXAN [Concomitant]
     Active Substance: CYCLOPHOSPHAMIDE
     Dosage: 910 MG, ONCE. CYCLE: 3
     Route: 042
     Dates: start: 20161110, end: 20161110
  8. DEXAMETHASONE SODIUM PHOSPHATE. [Concomitant]
     Active Substance: DEXAMETHASONE SODIUM PHOSPHATE
     Dosage: 10 MG, ONCE. STRENGTH: 5MG/ML
     Route: 042
     Dates: start: 20161020, end: 20161020
  9. DEXAMETHASONE SODIUM PHOSPHATE. [Concomitant]
     Active Substance: DEXAMETHASONE SODIUM PHOSPHATE
     Dosage: 10 MG, ONCE. STRENGTH: 5MG/ML
     Route: 042
     Dates: start: 20161110, end: 20161110
  10. ALOXI [Concomitant]
     Active Substance: PALONOSETRON HYDROCHLORIDE
     Dosage: 0.25 MG, ONCE
     Route: 042
     Dates: start: 20161110, end: 20161110
  11. EMEND (FOSAPREPITANT DIMEGLUMINE) [Suspect]
     Active Substance: FOSAPREPITANT DIMEGLUMINE
     Indication: PROPHYLAXIS OF NAUSEA AND VOMITING
     Dosage: 150 MG, ONCE
     Route: 042
     Dates: start: 20161201, end: 20161201
  12. ADRIAMYCIN [Concomitant]
     Active Substance: DOXORUBICIN HYDROCHLORIDE
     Indication: CHEMOTHERAPY
     Dosage: 91 MG, ONCE. CYCLE: 2
     Route: 042
     Dates: start: 20161020, end: 20161020
  13. ENDOXAN [Concomitant]
     Active Substance: CYCLOPHOSPHAMIDE
     Dosage: 910 MG, ONCE. CYCLE: 3
     Route: 042
     Dates: start: 20161201, end: 20161201
  14. ADRIAMYCIN [Concomitant]
     Active Substance: DOXORUBICIN HYDROCHLORIDE
     Dosage: 91 MG, ONCE. CYCLE: 4
     Route: 042
     Dates: start: 20161201, end: 20161201
  15. ENDOXAN [Concomitant]
     Active Substance: CYCLOPHOSPHAMIDE
     Indication: BREAST CANCER
     Dosage: 910 MG, ONCE. CYCLE: 1
     Route: 042
     Dates: start: 20160929, end: 20160929
  16. ADRIAMYCIN [Concomitant]
     Active Substance: DOXORUBICIN HYDROCHLORIDE
     Dosage: 91 MG, ONCE. CYCLE: 3
     Route: 042
     Dates: start: 20161110, end: 20161110
  17. ENDOXAN [Concomitant]
     Active Substance: CYCLOPHOSPHAMIDE
     Indication: CHEMOTHERAPY
     Dosage: 910 MG, ONCE. CYCLE: 2
     Route: 042
     Dates: start: 20161020, end: 20161020
  18. DEXAMETHASONE SODIUM PHOSPHATE. [Concomitant]
     Active Substance: DEXAMETHASONE SODIUM PHOSPHATE
     Indication: PREMEDICATION
     Dosage: 10 MG, ONCE. STRENGTH: 5MG/ML
     Route: 042
     Dates: start: 20160929, end: 20160929
  19. ALOXI [Concomitant]
     Active Substance: PALONOSETRON HYDROCHLORIDE
     Indication: PREMEDICATION
     Dosage: 0.25 MG, ONCE
     Route: 042
     Dates: start: 20160929, end: 20160929
  20. ALOXI [Concomitant]
     Active Substance: PALONOSETRON HYDROCHLORIDE
     Dosage: 0.25 MG, ONCE
     Route: 042
     Dates: start: 20161020, end: 20161020
  21. ALOXI [Concomitant]
     Active Substance: PALONOSETRON HYDROCHLORIDE
     Dosage: 0.25 MG, ONCE
     Route: 042
     Dates: start: 20161201, end: 20161201

REACTIONS (5)
  - Constipation [Recovered/Resolved]
  - Pneumonia [Recovered/Resolved]
  - Dyspepsia [Recovered/Resolved]
  - Herpes simplex [Recovered/Resolved]
  - Nausea [Recovered/Resolved]

NARRATIVE: CASE EVENT DATE: 20160930
